FAERS Safety Report 8617366-9 (Version None)
Quarter: 2012Q3

REPORT INFORMATION
  Report Type: 
  Country: None (occurrence: None)
  Receive Date: 20120823
  Receipt Date: 20120815
  Transmission Date: 20120928
  Serious: Yes (Hospitalization, Other)
  Sender: FDA-Public Use
  Company Number: US-009507513-1201USA01728

PATIENT

DRUGS (4)
  1. FOSAMAX [Suspect]
     Indication: OSTEOPOROSIS
     Dosage: 10 MG, QD
     Route: 048
     Dates: start: 20000401
  2. ALENDRONATE SODIUM [Suspect]
     Indication: OSTEOPOROSIS
     Dosage: 70 MG, QW
     Route: 048
     Dates: start: 20080401, end: 20081230
  3. FOSAMAX [Suspect]
     Dosage: 70 MG, QW
     Route: 048
     Dates: start: 20020129, end: 20080401
  4. FOSAMAX [Suspect]
     Dosage: UNK
     Route: 048
     Dates: start: 20080421, end: 20080709

REACTIONS (11)
  - FRACTURE NONUNION [None]
  - MUSCULOSKELETAL PAIN [None]
  - FALL [None]
  - FEMUR FRACTURE [None]
  - GAIT DISTURBANCE [None]
  - ANXIETY [None]
  - URINARY INCONTINENCE [None]
  - SPINAL OSTEOARTHRITIS [None]
  - INTERVERTEBRAL DISC DISORDER [None]
  - DEPRESSION [None]
  - MUSCULAR WEAKNESS [None]
